FAERS Safety Report 24890529 (Version 2)
Quarter: 2025Q1

REPORT INFORMATION
  Report Type: Spontaneous
  Country: US (occurrence: US)
  Receive Date: 20250127
  Receipt Date: 20250128
  Transmission Date: 20250408
  Serious: No
  Sender: PFIZER
  Company Number: US-PFIZER INC-PV202500009859

PATIENT
  Age: 75 Year
  Sex: Female

DRUGS (1)
  1. ESTRING [Suspect]
     Active Substance: ESTRADIOL
     Indication: Genitourinary symptom
     Dosage: 2 MG, EVERY 3 MONTHS (INSERT 1 RING EVERY 3 MONTHS)
     Route: 067

REACTIONS (3)
  - Nocturia [Recovering/Resolving]
  - Urge incontinence [Recovering/Resolving]
  - Dizziness [Unknown]

NARRATIVE: CASE EVENT DATE: 20250101
